FAERS Safety Report 9425941 (Version 1)
Quarter: 2013Q3

REPORT INFORMATION
  Report Type: Spontaneous
  Country: US (occurrence: US)
  Receive Date: 20130729
  Receipt Date: 20130729
  Transmission Date: 20140515
  Serious: No
  Sender: FDA-Public Use
  Company Number: US-009507513-1307USA007936

PATIENT
  Age: 54 Year
  Sex: Female

DRUGS (6)
  1. VICTRELIS [Suspect]
     Indication: CHRONIC HEPATITIS C
     Dosage: 800 MG, TID
     Route: 048
     Dates: start: 20130705
  2. RIBAPAK [Suspect]
     Indication: CHRONIC HEPATITIS C
  3. PEGASYS [Suspect]
     Indication: CHRONIC HEPATITIS C
  4. MILK THISTLE [Concomitant]
  5. ASCORBIC ACID [Concomitant]
  6. THIAMINE [Concomitant]

REACTIONS (5)
  - Breast mass [Unknown]
  - Dry mouth [Unknown]
  - Fatigue [Unknown]
  - Dry eye [Unknown]
  - Platelet count decreased [Unknown]
